FAERS Safety Report 7715565-1 (Version None)
Quarter: 2011Q3

REPORT INFORMATION
  Report Type: 
  Country: None (occurrence: None)
  Receive Date: 20110810
  Receipt Date: 20110222
  Transmission Date: 20111222
  Serious: Yes (Other)
  Sender: FDA-Public Use
  Company Number: 2011AT000073

PATIENT
  Age: 50 Year
  Sex: Male

DRUGS (3)
  1. ALPROSTADIL [Suspect]
     Indication: ERECTILE DYSFUNCTION
     Dosage: 5 UG;ICAN 500 UG;1X;ICAN
     Dates: start: 20100301, end: 20101201
  2. ALPROSTADIL [Suspect]
     Indication: ERECTILE DYSFUNCTION
     Dosage: 5 UG;ICAN 500 UG;1X;ICAN
     Dates: start: 20101229, end: 20101229
  3. OXYCONTIN [Concomitant]

REACTIONS (5)
  - ACCIDENTAL OVERDOSE [None]
  - PEYRONIE'S DISEASE [None]
  - SKIN DISORDER [None]
  - PRIAPISM [None]
  - PAINFUL ERECTION [None]
